FAERS Safety Report 5732805-9 (Version None)
Quarter: 2008Q2

REPORT INFORMATION
  Report Type: 
  Country: None (occurrence: None)
  Receive Date: 20080507
  Receipt Date: 20080507
  Transmission Date: 20081010
  Serious: Yes (Hospitalization)
  Sender: FDA-Public Use
  Company Number: None

PATIENT
  Sex: Female
  Weight: 65 kg

DRUGS (8)
  1. LISINOPRIL [Suspect]
     Indication: HYPERTENSION
     Dosage: 10MG TWICE DAILY ORAL
     Route: 048
  2. CLOPIDOGREL [Concomitant]
  3. OMEPRAZOLE [Concomitant]
  4. PRAVASTATIN [Concomitant]
  5. LORAZEPAM [Concomitant]
  6. TRAMADOL HCL [Concomitant]
  7. ROPINOROLE [Concomitant]
  8. VALPROIC ACID [Concomitant]

REACTIONS (4)
  - COUGH [None]
  - DYSPNOEA [None]
  - LIP SWELLING [None]
  - SWOLLEN TONGUE [None]
